FAERS Safety Report 6486156-8 (Version None)
Quarter: 2009Q4

REPORT INFORMATION
  Report Type: 
  Country: None (occurrence: None)
  Receive Date: 20091207
  Receipt Date: 20091123
  Transmission Date: 20100525
  Serious: Yes (Death)
  Sender: FDA-Public Use
  Company Number: 2009AC000442

PATIENT
  Age: 87 Year
  Sex: Male

DRUGS (1)
  1. DIGOXIN [Suspect]
     Dosage: PO
     Route: 048
     Dates: start: 20080101

REACTIONS (14)
  - CARDIOMEGALY [None]
  - CLOSTRIDIUM DIFFICILE COLITIS [None]
  - DEMENTIA [None]
  - ECONOMIC PROBLEM [None]
  - ENCEPHALITIS [None]
  - ENCEPHALOPATHY [None]
  - FALL [None]
  - HEAD INJURY [None]
  - INJURY [None]
  - MENINGITIS [None]
  - MENTAL STATUS CHANGES [None]
  - METABOLIC ENCEPHALOPATHY [None]
  - RENAL FAILURE [None]
  - RESPIRATORY FAILURE [None]
